FAERS Safety Report 13345515 (Version 2)
Quarter: 2017Q1

REPORT INFORMATION
  Report Type: Spontaneous
  Country: NL (occurrence: NL)
  Receive Date: 20170317
  Receipt Date: 20170330
  Transmission Date: 20170428
  Serious: Yes (Other)
  Sender: FDA-Public Use
  Company Number: NL-HIKMA PHARMACEUTICALS CO. LTD-2017NL002994

PATIENT

DRUGS (4)
  1. REMSIMA [Suspect]
     Active Substance: INFLIXIMAB
     Indication: IMMUNODEFICIENCY COMMON VARIABLE
     Dosage: 5 MG/KG, 8 WEEKLY INFUSION
     Route: 042
     Dates: start: 2016, end: 2016
  2. REMSIMA [Suspect]
     Active Substance: INFLIXIMAB
     Dosage: 5 MG/KG, 8 WEEKLY INFUSION
     Route: 042
     Dates: start: 2016, end: 2016
  3. REMSIMA [Suspect]
     Active Substance: INFLIXIMAB
     Dosage: 5 MG/KG, 8 WEEKLY INFUSION
     Route: 042
     Dates: start: 2016, end: 2016
  4. REMSIMA [Suspect]
     Active Substance: INFLIXIMAB
     Dosage: 5 MG/KG, 8 WEEKLY INFUSION
     Route: 042
     Dates: start: 2016, end: 2016

REACTIONS (2)
  - Seizure [Unknown]
  - Off label use [Unknown]

NARRATIVE: CASE EVENT DATE: 2016
